FAERS Safety Report 25971286 (Version 1)
Quarter: 2025Q4

REPORT INFORMATION
  Report Type: Report from Study
  Country: US (occurrence: US)
  Receive Date: 20251028
  Receipt Date: 20251028
  Transmission Date: 20260118
  Serious: No
  Sender: MALLINCKRODT
  Company Number: US-MALLINCKRODT-MNK202506465

PATIENT
  Age: 57 Year
  Sex: Female

DRUGS (3)
  1. CORTICOTROPIN [Suspect]
     Active Substance: CORTICOTROPIN
     Indication: Multiple sclerosis
     Dosage: 80 UNITS
     Route: 058
     Dates: start: 20231002
  2. UBLITUXIMAB [Concomitant]
     Active Substance: UBLITUXIMAB
     Dosage: UNKNOWN
  3. TYSABRI [Concomitant]
     Active Substance: NATALIZUMAB
     Dosage: UNKNOWN

REACTIONS (4)
  - Hot flush [Unknown]
  - Emotional distress [Unknown]
  - Insomnia [Unknown]
  - Oedema [Not Recovered/Not Resolved]
